FAERS Safety Report 6852785-2 (Version None)
Quarter: 2010Q3

REPORT INFORMATION
  Report Type: 
  Country: None (occurrence: None)
  Receive Date: 20100717
  Receipt Date: 20071121
  Transmission Date: 20110219
  Serious: No
  Sender: FDA-Public Use
  Company Number: US-PFIZER INC-2007099685

PATIENT
  Sex: Female
  Weight: 70.454 kg

DRUGS (6)
  1. CHANTIX [Suspect]
     Indication: SMOKING CESSATION THERAPY
     Dates: start: 20071110
  2. DIAZEPAM [Concomitant]
  3. ALLEGRA [Concomitant]
  4. NORCO [Concomitant]
  5. OXYCODONE HCL [Concomitant]
  6. GENERAL NUTRIENTS [Concomitant]

REACTIONS (1)
  - DIZZINESS [None]
